FAERS Safety Report 8045655-8 (Version None)
Quarter: 2012Q1

REPORT INFORMATION
  Report Type: 
  Country: None (occurrence: None)
  Receive Date: 20120113
  Receipt Date: 20120110
  Transmission Date: 20120608
  Serious: Yes (Other)
  Sender: FDA-Public Use
  Company Number: US-CELGENEUS-163-21880-11093482

PATIENT
  Sex: Male

DRUGS (7)
  1. VITAMIN E [Concomitant]
     Route: 065
     Dates: start: 20110101
  2. REVLIMID [Suspect]
     Dosage: 25 MILLIGRAM
     Route: 048
     Dates: start: 20091201, end: 20100518
  3. REVLIMID [Suspect]
     Dosage: 5MG-10MG
     Route: 048
     Dates: start: 20101025
  4. LOVAZA [Concomitant]
     Route: 065
     Dates: start: 20110101
  5. L-CARNITINE [Concomitant]
     Route: 065
     Dates: start: 20110101
  6. GLIPIZIDE [Concomitant]
     Route: 065
     Dates: start: 20110101
  7. REVLIMID [Suspect]
     Dosage: 10 MILLIGRAM
     Route: 048
     Dates: start: 20101201

REACTIONS (1)
  - GINGIVAL ULCERATION [None]
